FAERS Safety Report 6561572-4 (Version None)
Quarter: 2010Q1

REPORT INFORMATION
  Report Type: 
  Country: None (occurrence: None)
  Receive Date: 20100130
  Receipt Date: 20091019
  Transmission Date: 20100710
  Serious: No
  Sender: FDA-Public Use
  Company Number: US-ABBOTT-09P-163-0604251-00

PATIENT
  Sex: Female
  Weight: 68.1 kg

DRUGS (5)
  1. HUMIRA [Suspect]
     Indication: CROHN'S DISEASE
     Dosage: 160 MG ( 4 IN ONE DAY)
     Dates: start: 20090923
  2. HUMIRA [Suspect]
     Dosage: 80 MG ( 2 IN 1 DAY)
     Dates: start: 20091007, end: 20091007
  3. HUMIRA [Suspect]
     Dates: end: 20091001
  4. HUMIRA [Suspect]
  5. PREDNISONE [Concomitant]
     Indication: CROHN'S DISEASE

REACTIONS (5)
  - ABDOMINAL PAIN [None]
  - DIARRHOEA [None]
  - DRUG INEFFECTIVE [None]
  - RESPIRATORY TRACT CONGESTION [None]
  - THROAT IRRITATION [None]
